FAERS Safety Report 5635522-9 (Version None)
Quarter: 2008Q1

REPORT INFORMATION
  Report Type: 
  Country: None (occurrence: None)
  Receive Date: 20080222
  Receipt Date: 20080212
  Transmission Date: 20080703
  Serious: Yes (Other)
  Sender: FDA-Public Use
  Company Number: US-PFIZER INC-2008014492

PATIENT
  Sex: Male

DRUGS (4)
  1. SUTENT [Suspect]
     Dosage: DAILY DOSE:50MG-FREQ:4 WEEKS ON/2 WEEKS OFF
  2. NIASPAN [Concomitant]
     Route: 048
  3. LIPITOR [Concomitant]
  4. METFORMIN HCL [Concomitant]

REACTIONS (2)
  - HYPERTENSION [None]
  - HYPERTRIGLYCERIDAEMIA [None]
